FAERS Safety Report 5020157-1 (Version None)
Quarter: 2006Q2

REPORT INFORMATION
  Report Type: 
  Country: None (occurrence: None)
  Receive Date: 20060602
  Receipt Date: 20060512
  Transmission Date: 20061013
  Serious: Yes (Hospitalization, Other)
  Sender: FDA-Public Use
  Company Number: CL200605003531

PATIENT
  Age: 15 Year
  Sex: 0

DRUGS (3)
  1. OLANZAPINE [Suspect]
     Indication: ASPERGER'S DISORDER
     Dosage: 14 MG
     Dates: start: 20040101
  2. VALPROIC ACID [Concomitant]
  3. SERTRALINE [Concomitant]

REACTIONS (4)
  - BLOOD CREATINE PHOSPHOKINASE INCREASED [None]
  - INFLAMMATION [None]
  - MUSCLE STRAIN [None]
  - RENAL IMPAIRMENT [None]
